FAERS Safety Report 9397432 (Version 1)
Quarter: 2013Q3

REPORT INFORMATION
  Report Type: Spontaneous
  Country: US (occurrence: None)
  Receive Date: 20130711
  Receipt Date: 20130711
  Transmission Date: 20140515
  Serious: No
  Sender: FDA-Public Use
  Company Number: None

PATIENT
  Age: 52 Year
  Sex: Female

DRUGS (2)
  1. FLUOXETINE [Suspect]
     Indication: DEPRESSION
     Dosage: 3 QAM
     Route: 048
     Dates: start: 20030908, end: 20080422
  2. FLUOXETINE [Suspect]
     Indication: ANXIETY
     Dosage: 3 QAM
     Route: 048
     Dates: start: 20030908, end: 20080422

REACTIONS (1)
  - Drug ineffective [None]
